FAERS Safety Report 6824190-6 (Version None)
Quarter: 2010Q3

REPORT INFORMATION
  Report Type: 
  Country: None (occurrence: None)
  Receive Date: 20100708
  Receipt Date: 20061012
  Transmission Date: 20110219
  Serious: No
  Sender: FDA-Public Use
  Company Number: US-PFIZER INC-2006127012

PATIENT
  Sex: Female
  Weight: 72.57 kg

DRUGS (8)
  1. CHANTIX [Suspect]
     Indication: SMOKING CESSATION THERAPY
     Dates: start: 20061002, end: 20061001
  2. ATENOLOL [Concomitant]
  3. LEXAPRO [Concomitant]
  4. LIPITOR [Concomitant]
  5. NORVASC [Concomitant]
  6. PLAVIX [Concomitant]
  7. METHOTREXATE [Concomitant]
  8. VITAMINS [Concomitant]

REACTIONS (3)
  - COUGH [None]
  - NASOPHARYNGITIS [None]
  - TOBACCO USER [None]
